FAERS Safety Report 7639514-X (Version None)
Quarter: 2011Q3

REPORT INFORMATION
  Report Type: 
  Country: None (occurrence: None)
  Receive Date: 20110727
  Receipt Date: 20110719
  Transmission Date: 20111222
  Serious: Yes (Death)
  Sender: FDA-Public Use
  Company Number: JP-GLAXOSMITHKLINE-B0667751A

PATIENT
  Sex: Male
  Weight: 55 kg

DRUGS (18)
  1. CYCLOSPORINE [Concomitant]
     Indication: IMMUNOSUPPRESSION
     Dosage: 165MG PER DAY
     Dates: start: 20040909, end: 20040926
  2. FULCALIQ [Concomitant]
     Dosage: 903ML PER DAY
     Route: 042
     Dates: start: 20040920, end: 20040926
  3. CIPROFLOXACIN HCL [Concomitant]
     Dosage: 600MG PER DAY
     Route: 042
     Dates: start: 20040902, end: 20040919
  4. SOLU-MEDROL [Concomitant]
     Dosage: 125MG PER DAY
     Route: 042
     Dates: start: 20040926, end: 20040926
  5. FLUDARA [Suspect]
     Indication: CORD BLOOD TRANSPLANT THERAPY
     Dosage: 25MG PER DAY
     Route: 042
     Dates: start: 20040902, end: 20040906
  6. GRAN [Concomitant]
     Dates: start: 20040911, end: 20040926
  7. DIFLUCAN [Concomitant]
     Dosage: 200MG PER DAY
     Route: 048
     Dates: start: 20040827, end: 20040919
  8. SOLU-MEDROL [Concomitant]
     Dosage: 250MG PER DAY
     Route: 042
     Dates: start: 20040924, end: 20040925
  9. VANCOMYCIN [Concomitant]
     Dosage: 1G PER DAY
     Route: 042
     Dates: start: 20040921, end: 20040926
  10. IRRADIATION [Suspect]
     Indication: PRODUCT USED FOR UNKNOWN INDICATION
     Route: 065
  11. FLUCONAZOLE [Concomitant]
     Dosage: 400MG PER DAY
     Route: 042
     Dates: start: 20040920, end: 20040926
  12. MAXIPIME [Concomitant]
     Dosage: 4G PER DAY
     Route: 042
     Dates: start: 20040920, end: 20040926
  13. CALSLOT [Concomitant]
     Dosage: 20MG PER DAY
     Route: 048
     Dates: start: 20040621, end: 20040919
  14. SULFAMETHOXAZOLE [Concomitant]
     Dosage: 4IUAX PER DAY
     Route: 048
     Dates: start: 20040831, end: 20040908
  15. NIZATIDINE [Concomitant]
     Dosage: 150MG PER DAY
     Route: 048
     Dates: start: 20040621, end: 20040919
  16. SOLU-MEDROL [Concomitant]
     Dosage: 500MG PER DAY
     Route: 042
     Dates: start: 20040921, end: 20040923
  17. ALKERAN [Suspect]
     Indication: CORD BLOOD TRANSPLANT THERAPY
     Dosage: 40MG PER DAY
     Route: 042
     Dates: start: 20040907, end: 20040908
  18. UNKNOWN DRUG [Concomitant]
     Dosage: 1.25MG PER DAY
     Route: 042
     Dates: start: 20040905, end: 20040919

REACTIONS (4)
  - PNEUMONIA [None]
  - COUGH [None]
  - PYREXIA [None]
  - RESPIRATORY FAILURE [None]
